FAERS Safety Report 5260940-0 (Version None)
Quarter: 2007Q1

REPORT INFORMATION
  Report Type: 
  Country: None (occurrence: None)
  Receive Date: 20070309
  Receipt Date: 20070227
  Transmission Date: 20070707
  Serious: Yes (Hospitalization)
  Sender: FDA-Public Use
  Company Number: US-SHR-US-2006-014810

PATIENT
  Age: 10 Year
  Sex: Male
  Weight: 38.6 kg

DRUGS (12)
  1. LEUKINE [Suspect]
     Dosage: 6 A?G/KG, 1X/DAY
     Route: 058
     Dates: start: 20060425, end: 20060618
  2. PENTASA [Concomitant]
     Dosage: 2500 MG, 1X/DAY
     Route: 048
     Dates: start: 20060228
  3. ALBUTEROL [Concomitant]
     Indication: ASTHMA
     Dosage: UNK, AS REQ'D
     Dates: start: 19990101
  4. FLOVENT [Concomitant]
     Indication: ASTHMA
     Dosage: UNK, AS REQ'D
     Dates: start: 19990101
  5. MIRALAX [Concomitant]
     Indication: CONSTIPATION
     Dosage: UNK, 2X/DAY
     Route: 048
     Dates: start: 20051128
  6. DAILY MULTIVITAMIN [Concomitant]
     Dosage: 1 TAB(S), 1X/DAY
     Route: 048
     Dates: start: 20050101
  7. PROBIOTICA [Concomitant]
     Indication: MEDICAL DIET
     Dosage: 1 TAB(S), 1X/DAY
     Route: 048
     Dates: start: 20050101
  8. PRILOSEC [Concomitant]
     Dosage: 1 TAB(S), 1X/DAY
     Route: 048
     Dates: start: 20051128, end: 20060411
  9. ZOFRAN [Concomitant]
     Indication: NAUSEA
     Dosage: 4 MG, 1X/DAY PRN
     Route: 048
     Dates: start: 20060503, end: 20060506
  10. PHENERGAN ^AVENTIS PHARMA^ [Concomitant]
     Indication: NAUSEA
     Dosage: 12.5 MG, AS REQ'D
     Route: 048
     Dates: start: 20060501, end: 20060502
  11. ZANTAC [Concomitant]
     Dosage: 300 MG, 1X/DAY
     Route: 048
     Dates: start: 20060503, end: 20060602
  12. CORTISPORIN [Concomitant]
     Route: 001
     Dates: start: 20060521, end: 20060529

REACTIONS (2)
  - ABDOMINAL PAIN [None]
  - DUODENAL ULCER [None]
